FAERS Safety Report 15246795 (Version 1)
Quarter: 2018Q3

REPORT INFORMATION
  Report Type: Spontaneous
  Country: PH (occurrence: PH)
  Receive Date: 20180806
  Receipt Date: 20180806
  Transmission Date: 20181010
  Serious: Yes (Other)
  Sender: FDA-Public Use
  Company Number: PHHY2018PH061166

PATIENT
  Age: 33 Year
  Sex: Female

DRUGS (7)
  1. PREDNISONE. [Concomitant]
     Active Substance: PREDNISONE
     Indication: GLOMERULONEPHRITIS PROLIFERATIVE
     Dosage: 1 MG/KG, UNK
     Route: 065
  2. CALCIUM CARBONATE. [Concomitant]
     Active Substance: CALCIUM CARBONATE
     Indication: GLOMERULONEPHRITIS PROLIFERATIVE
     Dosage: UNK
     Route: 065
  3. PREDNISONE. [Concomitant]
     Active Substance: PREDNISONE
     Dosage: 0.75 MG/KG, QD
     Route: 065
  4. HYDROCORTISONE. [Concomitant]
     Active Substance: HYDROCORTISONE
     Indication: GLOMERULONEPHRITIS PROLIFERATIVE
     Dosage: UNK
     Route: 065
  5. HYDROCORTISONE. [Concomitant]
     Active Substance: HYDROCORTISONE
     Dosage: 300 MG, QD
     Route: 065
  6. VITAMIN D [Concomitant]
     Active Substance: CHOLECALCIFEROL
     Indication: GLOMERULONEPHRITIS PROLIFERATIVE
     Dosage: UNK
     Route: 065
  7. METHYLPREDNISOLONE. [Suspect]
     Active Substance: METHYLPREDNISOLONE
     Indication: GLOMERULONEPHRITIS PROLIFERATIVE
     Dosage: PULSE THERAPY
     Route: 065

REACTIONS (15)
  - Subarachnoid haemorrhage [Unknown]
  - Product use in unapproved indication [Unknown]
  - Posterior reversible encephalopathy syndrome [Recovering/Resolving]
  - Generalised oedema [Recovering/Resolving]
  - Status epilepticus [Recovering/Resolving]
  - Pyrexia [Unknown]
  - Azotaemia [Recovering/Resolving]
  - Cough [Unknown]
  - Stupor [Recovered/Resolved]
  - Unresponsive to stimuli [Recovered/Resolved]
  - Vomiting [Unknown]
  - Pneumonia [Unknown]
  - Urine output decreased [Recovering/Resolving]
  - Generalised tonic-clonic seizure [Recovering/Resolving]
  - Headache [Recovering/Resolving]
